FAERS Safety Report 5645957-6 (Version None)
Quarter: 2008Q1

REPORT INFORMATION
  Report Type: 
  Country: None (occurrence: None)
  Receive Date: 20080131
  Receipt Date: 20071210
  Transmission Date: 20080703
  Serious: No
  Sender: FDA-Public Use
  Company Number: 163-21880-07120629

PATIENT
  Age: 56 Year
  Sex: Male

DRUGS (4)
  1. REVLIMID [Suspect]
     Indication: MULTIPLE MYELOMA
     Dosage: 20 MG, ON FOR 20 DAYS / OFF FOR 8 DAYS, ORAL
     Route: 048
     Dates: start: 20071019
  2. LYRICA [Concomitant]
  3. COUMADIN [Concomitant]
  4. DEXAMETHASONE TAB [Concomitant]

REACTIONS (2)
  - HYPOAESTHESIA ORAL [None]
  - NEUROPATHY PERIPHERAL [None]
